FAERS Safety Report 6332788-7 (Version None)
Quarter: 2009Q3

REPORT INFORMATION
  Report Type: 
  Country: None (occurrence: None)
  Receive Date: 20090828
  Receipt Date: 20090820
  Transmission Date: 20100115
  Serious: Yes (Other)
  Sender: FDA-Public Use
  Company Number: B0589739A

PATIENT
  Age: 61 Year
  Sex: Male

DRUGS (4)
  1. ZOPHREN [Suspect]
     Dosage: 8MG CYCLIC
     Route: 042
  2. PLATINUM SALT [Concomitant]
     Route: 042
  3. TAXOTERE [Concomitant]
     Route: 042
  4. SOLU-MEDROL [Concomitant]
     Route: 042

REACTIONS (3)
  - DEPRESSED LEVEL OF CONSCIOUSNESS [None]
  - HEMIPLEGIA [None]
  - PARTIAL SEIZURES [None]
